FAERS Safety Report 21528045 (Version 1)
Quarter: 2022Q4

REPORT INFORMATION
  Report Type: Spontaneous
  Country: US (occurrence: US)
  Receive Date: 20221031
  Receipt Date: 20221031
  Transmission Date: 20230113
  Serious: No
  Sender: FDA-Public Use
  Company Number: US-RECKITT BENCKISER HEALTHCARE INT LIMITED-RB-087783-2022

PATIENT
  Sex: Female

DRUGS (1)
  1. MUCINEX [Suspect]
     Active Substance: GUAIFENESIN
     Indication: Nasal congestion
     Dosage: UNK
     Route: 048

REACTIONS (3)
  - Chest pain [Recovered/Resolved]
  - Pain [Recovered/Resolved]
  - Asphyxia [Recovered/Resolved]
